FAERS Safety Report 8579854-3 (Version None)
Quarter: 2012Q3

REPORT INFORMATION
  Report Type: 
  Country: None (occurrence: None)
  Receive Date: 20120808
  Receipt Date: 20120730
  Transmission Date: 20120928
  Serious: No
  Sender: FDA-Public Use
  Company Number: US-ASTRAZENECA-2012SE54203

PATIENT
  Sex: Male

DRUGS (1)
  1. TOPROL-XL [Suspect]
     Dosage: GENERIC
     Route: 048

REACTIONS (2)
  - THERAPEUTIC RESPONSE UNEXPECTED WITH DRUG SUBSTITUTION [None]
  - EXTRASYSTOLES [None]
